FAERS Safety Report 15766333 (Version 2)
Quarter: 2019Q2

REPORT INFORMATION
  Report Type: Spontaneous
  Country: US (occurrence: US)
  Receive Date: 20181227
  Receipt Date: 20190528
  Transmission Date: 20190711
  Serious: Yes (Other)
  Sender: FDA-Public Use
  Company Number: US-ASTRAZENECA-2018SF68647

PATIENT
  Age: 53 Year
  Sex: Female
  Weight: 66 kg

DRUGS (19)
  1. PRAVASTATIN. [Concomitant]
     Active Substance: PRAVASTATIN
  2. CRESTOR [Concomitant]
     Active Substance: ROSUVASTATIN CALCIUM
  3. SYNTHROID [Concomitant]
     Active Substance: LEVOTHYROXINE SODIUM
  4. AMITRIPTYLINE [Concomitant]
     Active Substance: AMITRIPTYLINE
  5. NEXIUM [Suspect]
     Active Substance: ESOMEPRAZOLE MAGNESIUM
     Indication: GASTROOESOPHAGEAL REFLUX DISEASE
     Route: 048
     Dates: start: 201606
  6. ACYCLOVIR. [Concomitant]
     Active Substance: ACYCLOVIR
  7. VITAMIN D [Concomitant]
     Active Substance: VITAMIN D NOS
  8. NEXIUM [Suspect]
     Active Substance: ESOMEPRAZOLE MAGNESIUM
     Indication: GASTROOESOPHAGEAL REFLUX DISEASE
     Route: 048
     Dates: start: 2003, end: 2011
  9. LISINOPRIL. [Concomitant]
     Active Substance: LISINOPRIL
  10. SAVELLA [Concomitant]
     Active Substance: MILNACIPRAN HYDROCHLORIDE
  11. CARVEDILOL. [Concomitant]
     Active Substance: CARVEDILOL
  12. ZETIA [Concomitant]
     Active Substance: EZETIMIBE
  13. ONDANSETRON [Concomitant]
     Active Substance: ONDANSETRON
  14. PENICILLIN G [Concomitant]
     Active Substance: PENICILLIN G
  15. ROSUVASTATIN. [Concomitant]
     Active Substance: ROSUVASTATIN
  16. ATENOLOL. [Concomitant]
     Active Substance: ATENOLOL
  17. NEXIUM [Suspect]
     Active Substance: ESOMEPRAZOLE MAGNESIUM
     Indication: GASTROOESOPHAGEAL REFLUX DISEASE
     Route: 048
     Dates: start: 2011, end: 2015
  18. NEXIUM [Suspect]
     Active Substance: ESOMEPRAZOLE MAGNESIUM
     Indication: GASTROOESOPHAGEAL REFLUX DISEASE
     Route: 048
     Dates: start: 201211, end: 201506
  19. PREDNISONE. [Concomitant]
     Active Substance: PREDNISONE

REACTIONS (2)
  - Chronic kidney disease [Not Recovered/Not Resolved]
  - Renal failure [Unknown]

NARRATIVE: CASE EVENT DATE: 2007
